FAERS Safety Report 5291058-9 (Version None)
Quarter: 2007Q2

REPORT INFORMATION
  Report Type: 
  Country: None (occurrence: None)
  Receive Date: 20070409
  Receipt Date: 20070330
  Transmission Date: 20071010
  Serious: Yes (Hospitalization)
  Sender: FDA-Public Use
  Company Number: 2006UW23625

PATIENT
  Sex: Male
  Weight: 140.9 kg

DRUGS (11)
  1. SEROQUEL [Suspect]
     Indication: OBSESSIVE-COMPULSIVE DISORDER
     Route: 048
     Dates: start: 20020523
  2. SEROQUEL [Suspect]
     Indication: ANXIETY
     Route: 048
     Dates: start: 20020523
  3. SEROQUEL [Suspect]
     Indication: DEPRESSION
     Route: 048
     Dates: start: 20020523
  4. SEROQUEL [Suspect]
     Route: 048
     Dates: start: 20020617
  5. SEROQUEL [Suspect]
     Route: 048
     Dates: start: 20020617
  6. SEROQUEL [Suspect]
     Route: 048
     Dates: start: 20020617
  7. ABILIFY [Concomitant]
  8. GEODON [Concomitant]
  9. NAVANE [Concomitant]
  10. RISPERDAL [Concomitant]
  11. ZYPREXA [Concomitant]

REACTIONS (2)
  - DIABETES MELLITUS [None]
  - THROMBOSIS [None]
